FAERS Safety Report 7767015-7 (Version None)
Quarter: 2011Q3

REPORT INFORMATION
  Report Type: 
  Country: None (occurrence: None)
  Receive Date: 20110919
  Receipt Date: 20110906
  Transmission Date: 20111222
  Serious: Yes (Death)
  Sender: FDA-Public Use
  Company Number: 1035202

PATIENT
  Age: 87 Year
  Sex: Male

DRUGS (1)
  1. HEPARIN SODIUM [Suspect]
     Indication: CARDIAC OPERATION
     Dosage: 95,000 UNITS,
     Dates: start: 20110902

REACTIONS (4)
  - THROMBOSIS [None]
  - SURGICAL PROCEDURE REPEATED [None]
  - DRUG EFFECT DECREASED [None]
  - CARDIO-RESPIRATORY ARREST [None]
